FAERS Safety Report 17975277 (Version 1)
Quarter: 2020Q3

REPORT INFORMATION
  Report Type: Report from Study
  Country: US (occurrence: US)
  Receive Date: 20200702
  Receipt Date: 20200702
  Transmission Date: 20201103
  Serious: Yes (Other)
  Sender: FDA-Public Use
  Company Number: US-BAUSCH-BL-2020-018707

PATIENT
  Age: 77 Year
  Sex: Female

DRUGS (4)
  1. LACTULOSE. [Concomitant]
     Active Substance: LACTULOSE
     Indication: PRODUCT USED FOR UNKNOWN INDICATION
  2. XIFAXAN [Suspect]
     Active Substance: RIFAXIMIN
     Indication: PRODUCT USED FOR UNKNOWN INDICATION
     Route: 048
  3. LASIX [Concomitant]
     Active Substance: FUROSEMIDE
     Indication: PRODUCT USED FOR UNKNOWN INDICATION
  4. ALDACTONE [Concomitant]
     Active Substance: SPIRONOLACTONE
     Indication: PRODUCT USED FOR UNKNOWN INDICATION

REACTIONS (25)
  - Haematochezia [Unknown]
  - Odynophagia [Unknown]
  - Constipation [Unknown]
  - Ascites [Unknown]
  - Non-alcoholic steatohepatitis [Unknown]
  - Hepatic cirrhosis [Unknown]
  - Hepatic steatosis [Unknown]
  - Blood glucose increased [Unknown]
  - Blood thyroid stimulating hormone decreased [Unknown]
  - Cough [Unknown]
  - Decreased appetite [Unknown]
  - Dysuria [Unknown]
  - Dyspepsia [Unknown]
  - Nausea [Unknown]
  - Abdominal pain [Unknown]
  - Portal hypertension [Unknown]
  - Haematemesis [Unknown]
  - Varices oesophageal [Unknown]
  - Dysphagia [Unknown]
  - Oedema [Unknown]
  - Hepatic encephalopathy [Unknown]
  - Pyrexia [Unknown]
  - Diarrhoea [Unknown]
  - Depression [Unknown]
  - Muscular weakness [Unknown]
